FAERS Safety Report 7699404-3 (Version None)
Quarter: 2011Q3

REPORT INFORMATION
  Report Type: 
  Country: None (occurrence: None)
  Receive Date: 20110819
  Receipt Date: 20110810
  Transmission Date: 20111222
  Serious: Yes (Hospitalization, Other)
  Sender: FDA-Public Use
  Company Number: US-ASTRAZENECA-2011SE47746

PATIENT
  Age: 63 Year
  Sex: Male
  Weight: 102.1 kg

DRUGS (1)
  1. CRESTOR [Suspect]
     Route: 048
     Dates: start: 20060101

REACTIONS (5)
  - MALIGNANT TUMOUR EXCISION [None]
  - LUNG NEOPLASM MALIGNANT [None]
  - DIABETES MELLITUS [None]
  - KNEE ARTHROPLASTY [None]
  - ARTHROPATHY [None]
